FAERS Safety Report 5455175-2 (Version None)
Quarter: 2007Q3

REPORT INFORMATION
  Report Type: 
  Country: None (occurrence: None)
  Receive Date: 20070914
  Receipt Date: 20070829
  Transmission Date: 20080115
  Serious: Yes (Life-Threatening, Hospitalization)
  Sender: FDA-Public Use
  Company Number: ACO_00378_2007

PATIENT
  Sex: Male

DRUGS (3)
  1. TIZANIDINE HCL [Suspect]
     Indication: BACK PAIN
     Dosage: (DF ORAL)
     Route: 048
     Dates: start: 20070731, end: 20070801
  2. DICLOFENAC SODIUM [Suspect]
     Indication: BACK PAIN
     Dosage: (DF ORAL)
     Route: 048
     Dates: start: 20070731, end: 20070801
  3. MISOPROSTOL [Suspect]
     Indication: DRUG USE FOR UNKNOWN INDICATION
     Dosage: (DF)

REACTIONS (8)
  - ABDOMINAL PAIN [None]
  - DRUG INTERACTION [None]
  - EYELID OEDEMA [None]
  - HEADACHE [None]
  - LIP SWELLING [None]
  - OEDEMA PERIPHERAL [None]
  - RASH ERYTHEMATOUS [None]
  - SWELLING FACE [None]
